FAERS Safety Report 12474372 (Version 1)
Quarter: 2016Q2

REPORT INFORMATION
  Report Type: Spontaneous
  Country: US (occurrence: None)
  Receive Date: 20160616
  Receipt Date: 20160616
  Transmission Date: 20160815
  Serious: No
  Sender: FDA-Public Use
  Company Number: None

PATIENT
  Age: 62 Year
  Sex: Female
  Weight: 50.8 kg

DRUGS (2)
  1. ZANTAC MAXIMUM STRENGTH 150 COOL MINT [Suspect]
     Active Substance: RANITIDINE HYDROCHLORIDE
     Indication: ABDOMINAL DISCOMFORT
     Route: 048
     Dates: start: 20160519, end: 20160601
  2. EXCEDRIN XS [Concomitant]

REACTIONS (2)
  - Product quality issue [None]
  - Drug ineffective [None]

NARRATIVE: CASE EVENT DATE: 20160519
